FAERS Safety Report 7076734-X (Version None)
Quarter: 2010Q4

REPORT INFORMATION
  Report Type: 
  Country: None (occurrence: None)
  Receive Date: 20101101
  Receipt Date: 20101026
  Transmission Date: 20110411
  Serious: Yes (Death, Life-Threatening, Hospitalization)
  Sender: FDA-Public Use
  Company Number: CN-ASTRAZENECA-2009SE11793

PATIENT
  Age: 20759 Day
  Sex: Male
  Weight: 65 kg

DRUGS (1)
  1. IRESSA [Suspect]
     Indication: NON-SMALL CELL LUNG CANCER
     Route: 048
     Dates: start: 20090725, end: 20090903

REACTIONS (3)
  - INTERSTITIAL LUNG DISEASE [None]
  - LUNG INFECTION [None]
  - RESPIRATORY FAILURE [None]
